FAERS Safety Report 10719946 (Version 2)
Quarter: 2015Q1

REPORT INFORMATION
  Report Type: Spontaneous
  Country: US (occurrence: US)
  Receive Date: 20150119
  Receipt Date: 20150119
  Transmission Date: 20150721
  Serious: No
  Sender: FDA-Public Use
  Company Number: US-UNITED THERAPEUTICS-UNT-2014-011201

PATIENT
  Age: 56 Year
  Sex: Male
  Weight: 64.85 kg

DRUGS (1)
  1. REMODULIN [Suspect]
     Active Substance: TREPROSTINIL
     Indication: PULMONARY HYPERTENSION
     Dosage: 0.016 ?G/KG/MIN, CONTINUING
     Route: 058
     Dates: start: 20120113

REACTIONS (5)
  - Infusion site erythema [Unknown]
  - Infusion site oedema [Unknown]
  - Infusion site warmth [Unknown]
  - Adverse event [Unknown]
  - Infusion site pain [Unknown]

NARRATIVE: CASE EVENT DATE: 201411
